FAERS Safety Report 22215584 (Version 1)
Quarter: 2023Q2

REPORT INFORMATION
  Report Type: Other
  Country: US (occurrence: US)
  Receive Date: 20230416
  Receipt Date: 20230416
  Transmission Date: 20230721
  Serious: Yes (Hospitalization)
  Sender: FDA-Public Use
  Company Number: US-DEXPHARM-20230924

PATIENT
  Age: 3 Month
  Sex: Female

DRUGS (1)
  1. OMEPRAZOLE [Suspect]
     Active Substance: OMEPRAZOLE
     Indication: Gastritis
     Dosage: COMPOUNDED OMEPRAZOLE SUSPENSION

REACTIONS (4)
  - Polydipsia [Recovered/Resolved]
  - Polyuria [Recovered/Resolved]
  - Weight increased [Recovered/Resolved]
  - Cushingoid [Recovered/Resolved]
